FAERS Safety Report 6317760-5 (Version None)
Quarter: 2009Q3

REPORT INFORMATION
  Report Type: 
  Country: None (occurrence: None)
  Receive Date: 20090821
  Receipt Date: 20090810
  Transmission Date: 20100115
  Serious: Yes (Other)
  Sender: FDA-Public Use
  Company Number: US-PFIZER INC-2006010355

PATIENT
  Sex: Female

DRUGS (7)
  1. PROVERA [Suspect]
     Dosage: UNK
     Route: 048
     Dates: start: 19971001, end: 20010501
  2. PROVERA [Suspect]
     Dates: start: 19981103, end: 20010530
  3. PREMARIN [Suspect]
     Indication: HORMONE REPLACEMENT THERAPY
     Dosage: UNK
     Dates: start: 19971001, end: 20010501
  4. PREMPHASE 14/14 [Suspect]
     Indication: HORMONE REPLACEMENT THERAPY
     Dosage: UNK
     Dates: start: 19960201, end: 19971001
  5. PREMPRO [Suspect]
     Indication: HORMONE REPLACEMENT THERAPY
     Dosage: UNK
     Dates: start: 19980601, end: 19981101
  6. ALBUTEROL [Concomitant]
     Indication: EMPHYSEMA
     Dosage: UNK
     Dates: start: 19880401
  7. ATROVENT [Concomitant]
     Indication: EMPHYSEMA
     Dosage: UNK
     Dates: start: 19980401

REACTIONS (1)
  - BREAST CANCER FEMALE [None]
